FAERS Safety Report 17316745 (Version 1)
Quarter: 2020Q1

REPORT INFORMATION
  Report Type: Spontaneous
  Country: US (occurrence: US)
  Receive Date: 20200124
  Receipt Date: 20200124
  Transmission Date: 20200409
  Serious: Yes (Disabling, Other)
  Sender: FDA-Public Use
  Company Number: US-PERRIGO-20US000644

PATIENT

DRUGS (1)
  1. IBUPROFEN-PHENYLEPHRINE [Suspect]
     Active Substance: IBUPROFEN\PHENYLEPHRINE HYDROCHLORIDE
     Indication: PRODUCT USED FOR UNKNOWN INDICATION
     Dosage: UNK, UNK
     Route: 048
     Dates: start: 202001

REACTIONS (2)
  - Glaucoma [Unknown]
  - Blindness [Unknown]

NARRATIVE: CASE EVENT DATE: 202001
